FAERS Safety Report 6750642-3 (Version None)
Quarter: 2010Q2

REPORT INFORMATION
  Report Type: 
  Country: None (occurrence: None)
  Receive Date: 20100602
  Receipt Date: 20100525
  Transmission Date: 20101027
  Serious: Yes (Death, Hospitalization)
  Sender: FDA-Public Use
  Company Number: US-BIOGENIDEC-2010BI009301

PATIENT
  Age: 63 Year
  Sex: Female

DRUGS (1)
  1. TYSABRI [Suspect]
     Indication: MULTIPLE SCLEROSIS
     Route: 042
     Dates: start: 20081111, end: 20100212

REACTIONS (4)
  - CARDIO-RESPIRATORY ARREST [None]
  - OPTIC NEURITIS [None]
  - URINARY TRACT INFECTION [None]
  - UROSEPSIS [None]
